FAERS Safety Report 6659704-2 (Version None)
Quarter: 2010Q1

REPORT INFORMATION
  Report Type: 
  Country: None (occurrence: None)
  Receive Date: 20100324
  Receipt Date: 20080918
  Transmission Date: 20100710
  Serious: Yes (Other)
  Sender: FDA-Public Use
  Company Number: 2009-2112

PATIENT
  Age: 81 Year
  Sex: Female

DRUGS (5)
  1. APO-GO AMPOULES (APO-GO) (APOMORPHINE HYDROCHLORIDE) (APOMORPHINE) [Suspect]
     Indication: PARKINSON'S DISEASE
     Dosage: SEE IMAGE
     Route: 058
     Dates: start: 20080707, end: 20080707
  2. SINEMET [Concomitant]
  3. ROPINIROLE (ROPINIROLE) (ROPINIROLE) [Concomitant]
  4. NEUPRO (ROTIGOTINE) (ROTIGOTINE) [Concomitant]
  5. MADOPAR (MADOPAR /00349201/) (BENSERAZIDE HYDROCHLORIDE, LEVODOPA) [Concomitant]

REACTIONS (3)
  - DYSKINESIA [None]
  - INCOHERENT [None]
  - MENTAL DISORDER [None]
